FAERS Safety Report 9912705 (Version 1)
Quarter: 2014Q1

REPORT INFORMATION
  Report Type: Spontaneous
  Country: IT (occurrence: None)
  Receive Date: 20140214
  Receipt Date: 20140214
  Transmission Date: 20141002
  Serious: Yes (Other)
  Sender: FDA-Public Use
  Company Number: 2014AP001090

PATIENT
  Age: 67 Year
  Sex: Male

DRUGS (5)
  1. PANTOPRAZOLE (PANTOPRAZOLE) [Suspect]
  2. ASPIRIN (ACETYLSALICYLIC ACID) [Concomitant]
  3. METFORMIN (METFORMIN) [Concomitant]
  4. RAMIPRIL (RAMIPRIL) [Concomitant]
  5. ATORVASTATIN (ATORVASTATIN) [Concomitant]

REACTIONS (5)
  - Hypomagnesaemia [None]
  - Hypokalaemia [None]
  - Hypocalcaemia [None]
  - Ataxia [None]
  - Tremor [None]
